FAERS Safety Report 20095284 (Version 8)
Quarter: 2023Q2

REPORT INFORMATION
  Report Type: Report from Study
  Country: US (occurrence: US)
  Receive Date: 20211122
  Receipt Date: 20230627
  Transmission Date: 20230722
  Serious: Yes (Life-Threatening, Hospitalization)
  Sender: FDA-Public Use
  Company Number: US-GLAXOSMITHKLINE-US2021GSK232518

PATIENT
  Age: 60 Year
  Sex: Female
  Weight: 122 kg

DRUGS (26)
  1. DOSTARLIMAB [Suspect]
     Active Substance: DOSTARLIMAB
     Indication: Endometrial cancer
     Dosage: 500 MG
     Dates: start: 20211015, end: 20211015
  2. DOSTARLIMAB [Suspect]
     Active Substance: DOSTARLIMAB
     Dosage: 500 MG
     Dates: start: 20211105, end: 20211105
  3. CARBOPLATIN [Suspect]
     Active Substance: CARBOPLATIN
     Indication: Endometrial cancer
     Dosage: 5 AUC
     Route: 042
     Dates: start: 20211015, end: 20211015
  4. CARBOPLATIN [Suspect]
     Active Substance: CARBOPLATIN
     Dosage: 666.5 MG
     Route: 042
     Dates: start: 20211105, end: 20211105
  5. PACLITAXEL [Suspect]
     Active Substance: PACLITAXEL
     Indication: Endometrial cancer
     Dosage: 175 MG/M2
     Route: 042
     Dates: start: 20211015, end: 20211015
  6. PACLITAXEL [Suspect]
     Active Substance: PACLITAXEL
     Dosage: 409.5 MG/M2
     Route: 042
     Dates: start: 20211105, end: 20211105
  7. VANCOMYCIN [Suspect]
     Active Substance: VANCOMYCIN
     Indication: Febrile neutropenia
     Dosage: 2500 MG, SINGLE
     Route: 042
     Dates: start: 20211110, end: 20211110
  8. VANCOMYCIN [Suspect]
     Active Substance: VANCOMYCIN
     Dosage: 1500 MG, BID
     Route: 042
     Dates: start: 20211111, end: 20211112
  9. ELIQUIS [Concomitant]
     Active Substance: APIXABAN
     Indication: Pulmonary embolism
     Dosage: 5 MG, BID
     Route: 048
     Dates: start: 20211011
  10. PALONOSETRON [Concomitant]
     Active Substance: PALONOSETRON
     Indication: Prophylaxis of nausea and vomiting
     Dosage: 250 UG,Q3 WEEK
     Route: 042
     Dates: start: 20211015
  11. CINVANTI [Concomitant]
     Active Substance: APREPITANT
     Indication: Prophylaxis of nausea and vomiting
     Dosage: 130 MG,Q3 WEEK
     Route: 042
     Dates: start: 20211015
  12. DEXAMETHASONE [Concomitant]
     Active Substance: DEXAMETHASONE
     Indication: Prophylaxis of nausea and vomiting
     Dosage: 12 MG,Q3 WEEK
     Route: 042
     Dates: start: 20211015
  13. DEXAMETHASONE [Concomitant]
     Active Substance: DEXAMETHASONE
     Dosage: 8 MG, Z - QAM
     Route: 048
     Dates: start: 20211016
  14. DIPHENHYDRAMINE [Concomitant]
     Active Substance: DIPHENHYDRAMINE
     Indication: Prophylaxis of nausea and vomiting
     Dosage: 25 MG,Q3WEEK
     Route: 042
     Dates: start: 20211015
  15. FAMOTIDINE [Concomitant]
     Active Substance: FAMOTIDINE
     Indication: Prophylaxis of nausea and vomiting
     Dosage: 20 MG,Q3WEEK
     Route: 042
     Dates: start: 20211015
  16. MAGNESIUM SULFATE [Concomitant]
     Active Substance: MAGNESIUM SULFATE
     Indication: Hypomagnesaemia
     Dosage: 2 G, SINGLE
     Route: 042
     Dates: start: 20211015, end: 20211015
  17. MAGNESIUM SULFATE [Concomitant]
     Active Substance: MAGNESIUM SULFATE
     Dosage: 2 G, SINGLE
     Route: 042
     Dates: start: 20211105, end: 20211105
  18. MAGNESIUM OXIDE [Concomitant]
     Active Substance: MAGNESIUM OXIDE
     Indication: Hypomagnesaemia
     Dosage: 400 MG, QD
     Route: 048
     Dates: start: 20211105
  19. POTASSIUM CHLORIDE [Concomitant]
     Active Substance: POTASSIUM CHLORIDE
     Indication: Hypokalaemia
     Dosage: 40 MEQ, SINGLE
     Route: 048
     Dates: start: 20211105, end: 20211105
  20. POTASSIUM CHLORIDE [Concomitant]
     Active Substance: POTASSIUM CHLORIDE
     Dosage: 10 MEQ, SINGLE
     Route: 048
     Dates: start: 20211110, end: 20211110
  21. PREDNISONE [Concomitant]
     Active Substance: PREDNISONE
     Indication: Blood creatinine increased
     Dosage: 60 MG
     Route: 048
     Dates: start: 20211102, end: 20211105
  22. PREDNISONE [Concomitant]
     Active Substance: PREDNISONE
     Dosage: 40 MG, QD
     Route: 048
     Dates: start: 20211106, end: 20211109
  23. PREDNISONE [Concomitant]
     Active Substance: PREDNISONE
     Dosage: 20 MG, QD
     Route: 048
     Dates: start: 20211110, end: 20211113
  24. SODIUM CHLORIDE [Concomitant]
     Active Substance: SODIUM CHLORIDE
     Indication: Dehydration
     Dosage: 75ML/HR, CO
     Route: 042
     Dates: start: 20211110, end: 20211111
  25. MONTELUKAST [Concomitant]
     Active Substance: MONTELUKAST SODIUM
     Indication: Asthma
     Dosage: 10 MG, QD
     Route: 048
     Dates: start: 20211110, end: 20211201
  26. MAGNESIUM [Concomitant]
     Active Substance: MAGNESIUM
     Indication: Hypomagnesaemia
     Dosage: 2 G, SINGLE
     Route: 042
     Dates: start: 20211110, end: 20211110

REACTIONS (2)
  - Acute kidney injury [Recovered/Resolved]
  - Febrile neutropenia [Recovered/Resolved]

NARRATIVE: CASE EVENT DATE: 20211110
